FAERS Safety Report 11894923 (Version 1)
Quarter: 2016Q1

REPORT INFORMATION
  Report Type: Spontaneous
  Country: US (occurrence: None)
  Receive Date: 20160106
  Receipt Date: 20160106
  Transmission Date: 20160526
  Serious: No
  Sender: FDA-Public Use
  Company Number: None

PATIENT
  Sex: Male

DRUGS (2)
  1. GLUCOPHAGE [Suspect]
     Active Substance: METFORMIN HYDROCHLORIDE
  2. GLUCOTROL [Suspect]
     Active Substance: GLIPIZIDE

REACTIONS (4)
  - Cerebrovascular accident [None]
  - Gallbladder disorder [None]
  - Blood glucose increased [None]
  - Weight decreased [None]
